FAERS Safety Report 7906454 (Version 3)
Quarter: 2012Q4

REPORT INFORMATION
  Report Type: Report from Study
  Country: US (occurrence: US)
  Receive Date: 20110420
  Receipt Date: 20121113
  Transmission Date: 20130627
  Serious: Yes (Hospitalization)
  Sender: FDA-Public Use
  Company Number: US-JNJFOC-20110404010

PATIENT
  Sex: Female
  Weight: 46.6 kg

DRUGS (15)
  1. REMICADE [Suspect]
     Indication: INFLAMMATORY BOWEL DISEASE
     Route: 042
     Dates: start: 20081203, end: 20110209
  2. METHOTREXATE [Concomitant]
  3. PROBIOTICS [Concomitant]
  4. ZANTAC [Concomitant]
  5. ZYRTEC [Concomitant]
  6. WELCHOL [Concomitant]
  7. BENTYL [Concomitant]
  8. PRILOSEC [Concomitant]
  9. PROZAC [Concomitant]
  10. BACTROBAN [Concomitant]
     Route: 061
  11. CLIOQUINOL [Concomitant]
  12. TRIAMCINOLONE [Concomitant]
     Route: 061
  13. SALICYLIC ACID [Concomitant]
     Route: 061
  14. MESALAMINE [Concomitant]
  15. ANTIBIOTICS FOR IBD [Concomitant]

REACTIONS (1)
  - Pyelonephritis [Recovered/Resolved]
